FAERS Safety Report 21979183 (Version 1)
Quarter: 2023Q1

REPORT INFORMATION
  Report Type: Spontaneous
  Country: BE (occurrence: BE)
  Receive Date: 20230210
  Receipt Date: 20230210
  Transmission Date: 20230418
  Serious: Yes (Life-Threatening, Other)
  Sender: FDA-Public Use
  Company Number: BE-PFM-2023-00748

PATIENT

DRUGS (3)
  1. ENCORAFENIB [Suspect]
     Active Substance: ENCORAFENIB
     Indication: Malignant melanoma
     Dosage: UNK
     Route: 065
  2. BINIMETINIB [Suspect]
     Active Substance: BINIMETINIB
     Indication: Malignant melanoma
     Dosage: UNK
     Route: 065
  3. REGORAFENIB [Suspect]
     Active Substance: REGORAFENIB
     Indication: Malignant melanoma
     Dosage: 40 MG UP TO 80 MG, QD
     Route: 065

REACTIONS (8)
  - Large intestine infection [Unknown]
  - Hepatotoxicity [Unknown]
  - Intestinal haemorrhage [Unknown]
  - Hypertension [Unknown]
  - Decreased appetite [Unknown]
  - Rash maculo-papular [Unknown]
  - Diarrhoea [Unknown]
  - Abdominal pain [Unknown]
